FAERS Safety Report 6677338-0 (Version None)
Quarter: 2010Q2

REPORT INFORMATION
  Report Type: 
  Country: None (occurrence: None)
  Receive Date: 20100412
  Receipt Date: 20100408
  Transmission Date: 20101027
  Serious: Yes (Hospitalization)
  Sender: FDA-Public Use
  Company Number: GXKR2010DE01272

PATIENT
  Age: 70 Year
  Sex: Female
  Weight: 45 kg

DRUGS (15)
  1. FENTANYL HEXAL (NGX) [Suspect]
     Indication: PAIN
     Dosage: 50 UG/HR, UNK
     Route: 062
     Dates: start: 20090601, end: 20090727
  2. CARVEDILOL [Suspect]
     Indication: HYPERTENSION
     Dosage: 12.5 MG, QD
     Dates: start: 20060101
  3. OMEPRAZOL (NGX) [Suspect]
     Indication: PROPHYLAXIS AGAINST GASTROINTESTINAL ULCER
     Dosage: 40 MG, QD
     Dates: start: 20050101
  4. SIMVASTATIN [Suspect]
     Indication: DYSLIPIDAEMIA
     Dosage: 10 MG, QD
     Dates: start: 20050101
  5. RESTEX [Suspect]
     Indication: RESTLESS LEGS SYNDROME
     Dosage: 1 DF, QD
     Dates: start: 20060101
  6. CANDESARTAN CILEXETIL [Suspect]
     Indication: HYPERTENSION
     Dosage: 8 MG, QD
     Dates: start: 20070101
  7. CINACALCET HYDROCHLORIDE [Interacting]
     Indication: HYPERPARATHYROIDISM
     Dosage: 90 MG, TID
     Dates: start: 20060101
  8. NOVONORM [Suspect]
     Indication: TYPE 2 DIABETES MELLITUS
     Dosage: 2 MG, TID
     Dates: start: 20070101
  9. ACTONEL [Suspect]
     Indication: OSTEOPOROSIS
     Dosage: 35 MG, QD
     Dates: start: 20080101
  10. DREISAVIT [Concomitant]
  11. FOSRENOL [Concomitant]
  12. DIGITOXIN TAB [Concomitant]
  13. METOCLOPRAMIDE HYDROCHLORIDE [Concomitant]
  14. ACETYLSALICYLIC ACID [Concomitant]
  15. METAMIZOLE [Concomitant]

REACTIONS (2)
  - SOMNOLENCE [None]
  - TRANSAMINASES INCREASED [None]
